FAERS Safety Report 5527080-4 (Version None)
Quarter: 2007Q4

REPORT INFORMATION
  Report Type: 
  Country: None (occurrence: None)
  Receive Date: 20071121
  Receipt Date: 20071109
  Transmission Date: 20080405
  Serious: Yes (Other)
  Sender: FDA-Public Use
  Company Number: SPV1-2007-04906

PATIENT
  Age: 11 Year
  Sex: Male

DRUGS (2)
  1. DAYTRANA [Suspect]
     Dosage: TRANSDERMAL
     Route: 062
     Dates: start: 20060101
  2. ADDERALL XR(AMPHENTAMINE ASPARTATE, AMPHETAMINE SULFATE, DEXTROAMPHETA [Suspect]
     Dates: start: 20060101

REACTIONS (3)
  - DECREASED APPETITE [None]
  - INTERVERTEBRAL DISC DEGENERATION [None]
  - WEIGHT GAIN POOR [None]
